FAERS Safety Report 9705782 (Version 3)
Quarter: 2015Q3

REPORT INFORMATION
  Report Type: Spontaneous
  Country: US (occurrence: US)
  Receive Date: 20131122
  Receipt Date: 20150803
  Transmission Date: 20151125
  Serious: No
  Sender: FDA-Public Use
  Company Number: US-GILEAD-2008-0017674

PATIENT
  Age: 77 Year
  Sex: Female
  Weight: 70.31 kg

DRUGS (17)
  1. LASIX [Concomitant]
     Active Substance: FUROSEMIDE
     Dosage: AS DIRECTED
     Route: 048
  2. PREDNISONE. [Concomitant]
     Active Substance: PREDNISONE
     Dosage: AS DIRECTED
     Route: 048
  3. LETAIRIS [Suspect]
     Active Substance: AMBRISENTAN
     Indication: PULMONARY ARTERIAL HYPERTENSION
     Route: 048
     Dates: start: 20080716, end: 20080731
  4. ATENOLOL. [Concomitant]
     Active Substance: ATENOLOL
     Dosage: AS DIRECTED
     Route: 048
  5. FIBER LAXATIVE [Concomitant]
     Active Substance: CALCIUM POLYCARBOPHIL
     Dosage: AS DIRECTED
     Route: 048
  6. LEVOTHYROXINE. [Concomitant]
     Active Substance: LEVOTHYROXINE
     Dosage: AS DIRECTED
     Route: 048
  7. COUMADIN [Concomitant]
     Active Substance: WARFARIN SODIUM
     Dosage: AS DIRECTED
     Route: 048
  8. ALTACE [Concomitant]
     Active Substance: RAMIPRIL
     Dosage: AS DIRECTED
     Route: 048
  9. VITAMIN D [Concomitant]
     Active Substance: CHOLECALCIFEROL
     Dosage: AS DIRECTED
     Route: 048
  10. FOLIC ACID. [Concomitant]
     Active Substance: FOLIC ACID
     Dosage: AS DIRECTED
     Route: 048
  11. DIAZEPAM. [Concomitant]
     Active Substance: DIAZEPAM
     Dosage: AS DIRECTED
     Route: 048
  12. VITAMIN C [Concomitant]
     Active Substance: ASCORBIC ACID
     Dosage: AS DIRECTED
     Route: 048
  13. AMBIEN [Concomitant]
     Active Substance: ZOLPIDEM TARTRATE
     Dosage: AS DIRECTED
     Route: 048
  14. GLYBURIDE. [Concomitant]
     Active Substance: GLYBURIDE
     Dosage: AS DIRECTED
     Route: 048
  15. IPRATROPIUM SPRAY [Concomitant]
     Dosage: AS DIRECTED
     Route: 045
  16. DIGOXIN. [Concomitant]
     Active Substance: DIGOXIN
     Dosage: AS DIRECTED
     Route: 048
  17. LORTAB [Concomitant]
     Active Substance: ACETAMINOPHEN\HYDROCODONE BITARTRATE
     Dosage: AS DIRECTED
     Route: 048

REACTIONS (3)
  - Malaise [None]
  - Asthenia [None]
  - Dyspnoea [None]
